FAERS Safety Report 7193758-2 (Version None)
Quarter: 2010Q4

REPORT INFORMATION
  Report Type: 
  Country: None (occurrence: None)
  Receive Date: 20101124
  Receipt Date: 20100820
  Transmission Date: 20110411
  Serious: No
  Sender: FDA-Public Use
  Company Number: 017546

PATIENT
  Sex: Female
  Weight: 79.4 kg

DRUGS (7)
  1. LACOSAMIDE [Suspect]
     Indication: CONVULSION
     Dosage: (450 MG, 200 MG IN AM AND 250 MG IN PM ORAL)
     Route: 048
     Dates: start: 20090901
  2. ATIVAN [Concomitant]
  3. DILANTIN [Concomitant]
  4. CLONAZEPAM [Concomitant]
  5. PAXIL [Concomitant]
  6. SINGULAIR [Concomitant]
  7. FLEXERIL [Concomitant]

REACTIONS (3)
  - CONVULSION [None]
  - NIGHT SWEATS [None]
  - TREMOR [None]
